FAERS Safety Report 6153279-2 (Version None)
Quarter: 2009Q2

REPORT INFORMATION
  Report Type: 
  Country: None (occurrence: None)
  Receive Date: 20090409
  Receipt Date: 20090403
  Transmission Date: 20091009
  Serious: Yes (Death)
  Sender: FDA-Public Use
  Company Number: 190649USA

PATIENT
  Age: 76 Year
  Sex: Female

DRUGS (8)
  1. BISOPROLOL FUMARATE [Suspect]
     Indication: MYOCARDIAL ISCHAEMIA
     Dosage: 2.5 MG, ORAL
     Route: 048
     Dates: start: 20080901, end: 20090201
  2. ALPRAZOLAM [Suspect]
     Dosage: ORAL
     Dates: start: 20080901, end: 20090201
  3. OMEPRAZOLE [Suspect]
     Dosage: ORAL
     Route: 048
     Dates: start: 20080901, end: 20090201
  4. ENALAPRIL [Suspect]
     Indication: HYPERTENSION
     Dosage: 2.5 MG ORAL
     Route: 048
     Dates: start: 20080901, end: 20090201
  5. ACETYLSALICYLIC ACID SRT [Suspect]
     Indication: MYOCARDIAL ISCHAEMIA
     Dosage: 100 MG ORAL
     Route: 048
     Dates: start: 20080901, end: 20090201
  6. CLOPIDOGREL [Suspect]
     Indication: CARDIAC DISORDER
     Dosage: 75 MG ORAL
     Route: 048
     Dates: start: 20080901, end: 20090201
  7. TORASEMIDE [Suspect]
     Dosage: 5 MG  ORAL
     Route: 048
     Dates: start: 20080901, end: 20090201
  8. ATORVASTIN SODIUM [Suspect]
     Indication: HYPERCHOLESTEROLAEMIA
     Dosage: 80 MG ORAL
     Route: 048
     Dates: start: 20080901, end: 20090201

REACTIONS (5)
  - CHOLELITHIASIS [None]
  - CHOLURIA [None]
  - HEPATIC NECROSIS [None]
  - JAUNDICE CHOLESTATIC [None]
  - VOMITING [None]
